FAERS Safety Report 6889586-5 (Version None)
Quarter: 2010Q3

REPORT INFORMATION
  Report Type: 
  Country: None (occurrence: None)
  Receive Date: 20100730
  Receipt Date: 20080317
  Transmission Date: 20110219
  Serious: No
  Sender: FDA-Public Use
  Company Number: US-PFIZER INC-2008005594

PATIENT
  Sex: Male
  Weight: 77.11 kg

DRUGS (1)
  1. LIPITOR [Suspect]
     Indication: BLOOD CHOLESTEROL INCREASED
     Dates: start: 20000101, end: 20071201

REACTIONS (3)
  - BLOOD CHOLESTEROL INCREASED [None]
  - PARAESTHESIA [None]
  - RESTLESS LEGS SYNDROME [None]
